FAERS Safety Report 9897673 (Version 1)
Quarter: 2014Q1

REPORT INFORMATION
  Report Type: Spontaneous
  Country: RS (occurrence: RS)
  Receive Date: 20140214
  Receipt Date: 20140214
  Transmission Date: 20141002
  Serious: Yes (Hospitalization)
  Sender: FDA-Public Use
  Company Number: RS-AMGEN-SRBSP2014010779

PATIENT
  Age: 57 Year
  Sex: Female

DRUGS (3)
  1. ENBREL [Suspect]
     Indication: PRODUCT USED FOR UNKNOWN INDICATION
     Dosage: 50 MG, WEEKLY
     Route: 058
     Dates: start: 20130922, end: 201311
  2. METHOTREXATE [Suspect]
     Indication: RHEUMATIC DISORDER
     Dosage: 17.5 MG, WEEKLY
     Route: 048
     Dates: start: 2007
  3. PRONISON [Concomitant]
     Indication: RHEUMATIC DISORDER
     Dosage: 25 MG, 1X/DAY, 15MG+10MG
     Route: 048
     Dates: start: 2007

REACTIONS (4)
  - Pulmonary mass [Recovering/Resolving]
  - Pulmonary fibrosis [Recovering/Resolving]
  - Eyelid oedema [Unknown]
  - Infection [Unknown]
